FAERS Safety Report 15754476 (Version 3)
Quarter: 2019Q1

REPORT INFORMATION
  Report Type: Report from Study
  Country: JP (occurrence: JP)
  Receive Date: 20181224
  Receipt Date: 20190223
  Transmission Date: 20190417
  Serious: Yes (Other)
  Sender: FDA-Public Use
  Company Number: JP-AMGEN-JPNNI2018181223

PATIENT
  Age: 56 Year
  Sex: Male
  Weight: 72.2 kg

DRUGS (4)
  1. ONEALFA [Concomitant]
     Active Substance: ALFACALCIDOL
     Dosage: 0.125 MUG, UNK (0.125 UG)
     Route: 048
  2. PLETAAL [Concomitant]
     Active Substance: CILOSTAZOL
     Dosage: UNK
     Route: 065
  3. ETELCALCETIDE [Suspect]
     Active Substance: ETELCALCETIDE
     Indication: HYPERPARATHYROIDISM SECONDARY
     Dosage: 2.5 MG, 3 TIMES/WK (2.5 MG, Q56H)
     Route: 010
     Dates: start: 20171115
  4. PRECIPITATED CALCIUM CARBONATE [Concomitant]
     Active Substance: CALCIUM CARBONATE
     Dosage: 1000 MG, UNK (1000 MG)
     Route: 048

REACTIONS (4)
  - Thrombotic cerebral infarction [Recovering/Resolving]
  - Blood pressure increased [Recovering/Resolving]
  - Nasopharyngitis [Recovering/Resolving]
  - Vomiting [Recovered/Resolved]

NARRATIVE: CASE EVENT DATE: 20171120
